FAERS Safety Report 18922702 (Version 9)
Quarter: 2021Q3

REPORT INFORMATION
  Report Type: Spontaneous
  Country: US (occurrence: US)
  Receive Date: 20210222
  Receipt Date: 20210713
  Transmission Date: 20211014
  Serious: No
  Sender: FDA-Public Use
  Company Number: US-BIOGEN-2021BI00978198

PATIENT
  Age: 53 Year
  Sex: Female

DRUGS (19)
  1. VUMERITY [Suspect]
     Active Substance: DIROXIMEL FUMARATE
     Dosage: MAINTENANCE DOSE
     Route: 048
     Dates: start: 202103
  2. FUROSEMIDE. [Concomitant]
     Active Substance: FUROSEMIDE
     Indication: PRODUCT USED FOR UNKNOWN INDICATION
     Route: 065
  3. LYRICA [Concomitant]
     Active Substance: PREGABALIN
     Indication: PRODUCT USED FOR UNKNOWN INDICATION
     Route: 065
  4. METFORMIN HYDROCHLORIDE. [Concomitant]
     Active Substance: METFORMIN HYDROCHLORIDE
     Indication: PRODUCT USED FOR UNKNOWN INDICATION
     Route: 065
  5. VUMERITY [Suspect]
     Active Substance: DIROXIMEL FUMARATE
     Route: 048
     Dates: start: 20210122
  6. BACLOFEN. [Concomitant]
     Active Substance: BACLOFEN
     Indication: PRODUCT USED FOR UNKNOWN INDICATION
     Dosage: POW
     Route: 065
  7. VOLTAREN [Concomitant]
     Active Substance: DICLOFENAC SODIUM
     Indication: PRODUCT USED FOR UNKNOWN INDICATION
     Dosage: 1%
     Route: 065
  8. VUMERITY [Suspect]
     Active Substance: DIROXIMEL FUMARATE
     Dosage: MAINTENANCE DOSE
     Route: 048
     Dates: start: 20210122, end: 20210225
  9. VUMERITY [Suspect]
     Active Substance: DIROXIMEL FUMARATE
     Route: 048
     Dates: start: 20210127
  10. CLONAZEPAM. [Concomitant]
     Active Substance: CLONAZEPAM
     Indication: PRODUCT USED FOR UNKNOWN INDICATION
     Dosage: POW
     Route: 065
  11. METHOCARBAMO [Concomitant]
     Indication: PRODUCT USED FOR UNKNOWN INDICATION
     Route: 065
  12. OMEPRAZOLE. [Concomitant]
     Active Substance: OMEPRAZOLE
     Indication: PRODUCT USED FOR UNKNOWN INDICATION
     Route: 065
  13. VUMERITY [Suspect]
     Active Substance: DIROXIMEL FUMARATE
     Indication: MULTIPLE SCLEROSIS
     Dosage: STARTING DOSE
     Route: 048
     Dates: start: 20210122
  14. VUMERITY [Suspect]
     Active Substance: DIROXIMEL FUMARATE
     Route: 048
     Dates: start: 20210125
  15. MELATONIN SUB [Concomitant]
     Indication: PRODUCT USED FOR UNKNOWN INDICATION
     Route: 065
  16. LOSARTAN POT [Concomitant]
     Active Substance: LOSARTAN POTASSIUM
     Indication: PRODUCT USED FOR UNKNOWN INDICATION
     Dosage: T B 100?12.5
     Route: 065
  17. ARMOUR THYRO [Concomitant]
     Indication: PRODUCT USED FOR UNKNOWN INDICATION
     Route: 065
  18. VIIBRYD [Concomitant]
     Active Substance: VILAZODONE HYDROCHLORIDE
     Indication: PRODUCT USED FOR UNKNOWN INDICATION
     Route: 065
  19. PRAMIPEXOLE DIHYDROCHLORIDE. [Concomitant]
     Active Substance: PRAMIPEXOLE DIHYDROCHLORIDE
     Indication: PRODUCT USED FOR UNKNOWN INDICATION
     Route: 065

REACTIONS (27)
  - Stress fracture [Not Recovered/Not Resolved]
  - Limb injury [Not Recovered/Not Resolved]
  - Joint injury [Unknown]
  - Visual impairment [Unknown]
  - Tremor [Unknown]
  - Diarrhoea [Not Recovered/Not Resolved]
  - Flushing [Not Recovered/Not Resolved]
  - Illness [Unknown]
  - Memory impairment [Unknown]
  - Fatigue [Unknown]
  - Balance disorder [Recovered/Resolved]
  - Anxiety [Unknown]
  - Pruritus [Not Recovered/Not Resolved]
  - Hypoaesthesia [Unknown]
  - Anal incontinence [Unknown]
  - Disturbance in attention [Unknown]
  - Fall [Recovered/Resolved]
  - Arthropathy [Not Recovered/Not Resolved]
  - Mental disorder [Not Recovered/Not Resolved]
  - Muscular weakness [Unknown]
  - Skin odour abnormal [Not Recovered/Not Resolved]
  - Peripheral swelling [Unknown]
  - Bacterial vaginosis [Recovered/Resolved]
  - Product dose omission issue [Recovered/Resolved]
  - Insomnia [Unknown]
  - Urinary incontinence [Unknown]
  - Paraesthesia [Unknown]

NARRATIVE: CASE EVENT DATE: 202102
